FAERS Safety Report 8114771-4 (Version None)
Quarter: 2012Q1

REPORT INFORMATION
  Report Type: 
  Country: None (occurrence: None)
  Receive Date: 20120206
  Receipt Date: 20120131
  Transmission Date: 20120608
  Serious: Yes (Death, Hospitalization, Disabling)
  Sender: FDA-Public Use
  Company Number: US-CELGENEUS-163-21880-11073299

PATIENT
  Sex: Female

DRUGS (22)
  1. VELCADE [Concomitant]
     Indication: MULTIPLE MYELOMA
     Dosage: 2.2 MILLIGRAM
     Route: 065
     Dates: start: 20110503, end: 20110805
  2. ALBUTEROL [Concomitant]
     Dosage: 20 MILLIGRAM
     Route: 065
     Dates: start: 20110801
  3. ATIVAN [Concomitant]
     Route: 065
     Dates: start: 20110822
  4. IMDUR [Concomitant]
     Dosage: 30 MILLIGRAM
     Route: 048
  5. REVLIMID [Suspect]
     Dosage: 5 MILLIGRAM
     Route: 048
     Dates: start: 20110526
  6. LEVAQUIN [Concomitant]
     Dosage: 500 MILLIGRAM
     Route: 041
     Dates: start: 20110801
  7. DULCOLAX [Concomitant]
     Indication: CONSTIPATION
     Route: 065
     Dates: start: 20110801
  8. FENTANYL CITRATE [Concomitant]
     Dosage: 100 MICROGRAM
     Route: 062
  9. DECADRON [Concomitant]
     Dosage: 40 MILLIGRAM
     Route: 065
     Dates: start: 20110601, end: 20110825
  10. VANCOMYCIN [Concomitant]
     Dosage: 1 GRAM
     Route: 041
     Dates: start: 20110801
  11. LASIX [Concomitant]
     Route: 041
     Dates: start: 20110801
  12. DIOVAN [Interacting]
     Indication: HYPERTENSION
     Dosage: 80 MILLIGRAM
     Route: 065
     Dates: start: 20110601, end: 20110825
  13. LIPITOR [Concomitant]
     Dosage: 40 MILLIGRAM
     Route: 065
     Dates: end: 20110825
  14. DUONEB [Concomitant]
     Dosage: 3 MILLILITER
     Route: 055
     Dates: start: 20110801
  15. ALBUTEROL [Concomitant]
     Dosage: 2.5 MILLIGRAM
     Route: 055
  16. SOLU-MEDROL [Concomitant]
     Dosage: 80 MILLILITER
     Route: 065
  17. MORPHINE [Concomitant]
     Route: 065
     Dates: start: 20110822
  18. PERCOCET [Concomitant]
     Dosage: 1 TABLET
     Route: 048
  19. LOPRESSOR [Concomitant]
     Indication: HYPERTENSION
     Dosage: 50 MILLIGRAM
     Route: 065
     Dates: end: 20110825
  20. PRILOSEC [Concomitant]
     Dosage: 20 MILLIGRAM
     Route: 065
     Dates: end: 20110825
  21. PREDNISONE TAB [Concomitant]
     Dosage: 10 MILLIGRAM
     Route: 048
  22. XANAX [Concomitant]
     Dosage: .25 MILLIGRAM
     Route: 048

REACTIONS (5)
  - CARDIAC FAILURE ACUTE [None]
  - RENAL FAILURE [None]
  - ABASIA [None]
  - SPINAL COMPRESSION FRACTURE [None]
  - ABDOMINAL PAIN UPPER [None]
